FAERS Safety Report 9791510 (Version 1)
Quarter: 2014Q1

REPORT INFORMATION
  Report Type: Spontaneous
  Country: CA (occurrence: CA)
  Receive Date: 20140101
  Receipt Date: 20140101
  Transmission Date: 20141002
  Serious: Yes (Other)
  Sender: FDA-Public Use
  Company Number: PHHY2013CA152667

PATIENT
  Age: 32 Year
  Sex: Female

DRUGS (7)
  1. METHOTREXATE [Suspect]
     Indication: SYSTEMIC LUPUS ERYTHEMATOSUS
     Dosage: 10 MG, QW
     Route: 048
  2. ACETYLSALICYLIC ACID [Suspect]
  3. HYDROXYCHLOROQUINE [Suspect]
  4. LEFLUNOMIDE [Suspect]
  5. FOLIC ACID [Suspect]
  6. MEPREDNISONE [Suspect]
  7. CHOLESTYRAMINE [Suspect]

REACTIONS (3)
  - Foetal death [Unknown]
  - Maternal exposure before pregnancy [Unknown]
  - Maternal exposure during pregnancy [Unknown]
